FAERS Safety Report 9348452 (Version 1)
Quarter: 2013Q2

REPORT INFORMATION
  Report Type: Spontaneous
  Country: US (occurrence: US)
  Receive Date: 20130614
  Receipt Date: 20130614
  Transmission Date: 20140414
  Serious: Yes (Hospitalization)
  Sender: FDA-Public Use
  Company Number: US-ASTELLAS-2013US006162

PATIENT
  Age: 66 Year
  Sex: Male

DRUGS (2)
  1. PROGRAF [Suspect]
     Indication: RENAL TRANSPLANT
     Dosage: 0.5 MG, UID/QD/ AM
     Route: 048
     Dates: start: 20100909
  2. PROGRAF [Suspect]
     Dosage: 1 MG, UID/QD / PM
     Route: 048
     Dates: start: 20100909

REACTIONS (1)
  - Hospitalisation [Unknown]
